FAERS Safety Report 5897026-8 (Version None)
Quarter: 2008Q3

REPORT INFORMATION
  Report Type: 
  Country: None (occurrence: None)
  Receive Date: 20080924
  Receipt Date: 20080709
  Transmission Date: 20090109
  Serious: Yes (Other)
  Sender: FDA-Public Use
  Company Number: US-ASTRAZENECA-2008UW01684

PATIENT
  Age: 544 Month
  Sex: Male
  Weight: 108.9 kg

DRUGS (11)
  1. SEROQUEL [Suspect]
     Indication: BIPOLAR DISORDER
     Dosage: 25MG, 50M, 100MG, 300 MG
     Route: 048
     Dates: start: 20050910
  2. SEROQUEL [Suspect]
     Indication: DEPRESSION
     Dosage: 25MG, 50M, 100MG, 300 MG
     Route: 048
     Dates: start: 20050910
  3. ABILIFY [Concomitant]
     Dates: start: 20050112
  4. PROZAC [Concomitant]
     Dosage: 30-40 MG
     Dates: start: 20050910
  5. WELLBUTRIN [Concomitant]
     Dates: start: 20050615
  6. LAMICTAL [Concomitant]
     Dosage: 100 MG X 2
     Dates: start: 20050910
  7. TRAZODONE HCL [Concomitant]
     Dates: start: 20060906
  8. TEMAZEPAM [Concomitant]
     Dates: start: 20050910, end: 20070804
  9. NAMENDA [Concomitant]
     Dates: start: 20070711
  10. CLONOPIN [Concomitant]
     Dates: start: 20070507
  11. AMBIEN [Concomitant]
     Dates: start: 20050615, end: 20050715

REACTIONS (4)
  - ARTERIOSCLEROSIS [None]
  - CARDIAC FAILURE CONGESTIVE [None]
  - DIABETES MELLITUS [None]
  - HYPERLIPIDAEMIA [None]
